FAERS Safety Report 19186204 (Version 6)
Quarter: 2021Q3

REPORT INFORMATION
  Report Type: Report from Study
  Country: None (occurrence: CO)
  Receive Date: 20210427
  Receipt Date: 20210819
  Transmission Date: 20211014
  Serious: Yes (Hospitalization, Other)
  Sender: FDA-Public Use
  Company Number: CO-ABBVIE-21K-036-3876525-00

PATIENT
  Age: 68 Year
  Sex: Female
  Weight: 58 kg

DRUGS (2)
  1. HUMIRA [Suspect]
     Active Substance: ADALIMUMAB
     Indication: RHEUMATOID ARTHRITIS
     Route: 058
     Dates: start: 20210227, end: 20210410
  2. HUMIRA [Suspect]
     Active Substance: ADALIMUMAB
     Route: 058
     Dates: start: 2021

REACTIONS (15)
  - Haemorrhage [Recovering/Resolving]
  - Haematochezia [Not Recovered/Not Resolved]
  - Nephrolithiasis [Recovering/Resolving]
  - Urinary tract discomfort [Unknown]
  - Gastritis [Recovering/Resolving]
  - Large intestine polyp [Recovering/Resolving]
  - Incisional hernia [Recovering/Resolving]
  - White blood cell disorder [Recovering/Resolving]
  - Irritable bowel syndrome [Unknown]
  - Hydronephrosis [Recovering/Resolving]
  - Diverticulitis [Recovering/Resolving]
  - Infection [Recovering/Resolving]
  - Contracted bladder [Recovering/Resolving]
  - Diverticulum [Recovering/Resolving]
  - Colitis [Unknown]

NARRATIVE: CASE EVENT DATE: 2021
